FAERS Safety Report 20089498 (Version 2)
Quarter: 2021Q4

REPORT INFORMATION
  Report Type: Spontaneous
  Country: US (occurrence: US)
  Receive Date: 20211119
  Receipt Date: 20211218
  Transmission Date: 20220303
  Serious: No
  Sender: FDA-Public Use
  Company Number: US-SANOFI-00858358

PATIENT
  Age: 68 Year
  Sex: Female

DRUGS (3)
  1. MULTAQ [Suspect]
     Active Substance: DRONEDARONE
     Indication: Atrial fibrillation
     Dosage: 400 MG, BID
     Dates: start: 20211111
  2. METOPROLOL [Concomitant]
     Active Substance: METOPROLOL
     Dosage: 100 MG
  3. LIPITOR [Concomitant]
     Active Substance: ATORVASTATIN CALCIUM
     Indication: Blood cholesterol increased

REACTIONS (6)
  - Discomfort [Unknown]
  - Blood cholesterol abnormal [Unknown]
  - Nausea [Not Recovered/Not Resolved]
  - Asthenia [Not Recovered/Not Resolved]
  - Fatigue [Not Recovered/Not Resolved]
  - Drug ineffective [Unknown]

NARRATIVE: CASE EVENT DATE: 20211111
